FAERS Safety Report 9912572 (Version 1)
Quarter: 2014Q1

REPORT INFORMATION
  Report Type: Spontaneous
  Country: JP (occurrence: None)
  Receive Date: 20140212
  Receipt Date: 20140212
  Transmission Date: 20141002
  Serious: Yes (Other)
  Sender: FDA-Public Use
  Company Number: ADR-2014-00220

PATIENT
  Age: 56 Year
  Sex: Female

DRUGS (1)
  1. GABALON [Suspect]
     Dates: start: 20100507

REACTIONS (3)
  - Radius fracture [None]
  - Fall [None]
  - Accident [None]
